FAERS Safety Report 8507799-3 (Version None)
Quarter: 2012Q3

REPORT INFORMATION
  Report Type: 
  Country: None (occurrence: None)
  Receive Date: 20120713
  Receipt Date: 20120709
  Transmission Date: 20120928
  Serious: Yes (Death, Life-Threatening, Hospitalization, Other)
  Sender: FDA-Public Use
  Company Number: PHHO2012MX008869

PATIENT
  Sex: Male
  Weight: 48 kg

DRUGS (13)
  1. NEORAL [Suspect]
     Dosage: 25 MG, BID
     Route: 048
     Dates: end: 20120613
  2. NEORAL [Suspect]
     Dosage: 25 MG, BID
     Route: 048
     Dates: start: 20120618
  3. ACYCLOVIR [Concomitant]
     Indication: PROPHYLAXIS
     Dosage: 200 MG, TID
     Route: 048
     Dates: start: 20120418
  4. MYFORTIC [Concomitant]
     Indication: RENAL TRANSPLANT
     Dosage: 720 MG, BID
     Route: 048
     Dates: start: 20120418, end: 20120613
  5. BACTRIM [Concomitant]
     Indication: PROPHYLAXIS
     Dosage: 800/160MG, QD
     Route: 048
     Dates: start: 20120418
  6. AMLODIPINE [Concomitant]
     Indication: HYPERTENSION
     Dosage: 10 MG, QD
     Route: 048
     Dates: start: 20120418, end: 20120613
  7. PREDNISONE [Suspect]
     Indication: RENAL TRANSPLANT
     Dosage: 15 MG, QD
     Route: 048
     Dates: start: 20120516, end: 20120613
  8. MYFORTIC [Concomitant]
     Dosage: 720 MG, BID
     Route: 048
     Dates: start: 20120618
  9. NYSTATIN [Concomitant]
     Indication: PROPHYLAXIS
     Dosage: 10000 U, TID
     Route: 048
     Dates: start: 20120418
  10. NEORAL [Suspect]
     Indication: RENAL TRANSPLANT
     Dosage: 50 MG, BID
     Route: 048
     Dates: start: 20120502
  11. METOPROLOL TARTRATE [Concomitant]
     Indication: HYPERTENSION
     Dosage: 100 MG, BID
     Route: 048
     Dates: start: 20120418
  12. LOSARTAN POTASSIUM [Concomitant]
     Indication: HYPERTENSION
     Dosage: 50 MG, QD
     Route: 048
     Dates: start: 20120418, end: 20120613
  13. PREDNISONE [Suspect]
     Dosage: 15 MG, QD
     Route: 048

REACTIONS (8)
  - PNEUMONIA [None]
  - RESPIRATORY FAILURE [None]
  - JAUNDICE [None]
  - CYTOMEGALOVIRUS INFECTION [None]
  - ACUTE RESPIRATORY DISTRESS SYNDROME [None]
  - GASTROINTESTINAL HAEMORRHAGE [None]
  - COMPLICATIONS OF TRANSPLANTED KIDNEY [None]
  - GASTRITIS [None]
